FAERS Safety Report 18898923 (Version 1)
Quarter: 2021Q1

REPORT INFORMATION
  Report Type: Spontaneous
  Country: US (occurrence: US)
  Receive Date: 20210215
  Receipt Date: 20210215
  Transmission Date: 20210420
  Serious: Yes (Hospitalization, Other)
  Sender: FDA-Public Use
  Company Number: None

PATIENT
  Age: 46 Year
  Sex: Female
  Weight: 93.4 kg

DRUGS (9)
  1. PACLITAXEL. [Suspect]
     Active Substance: PACLITAXEL
     Indication: METASTASES TO LIVER
     Dosage: ?          OTHER FREQUENCY:EVERY 8 DAYS;?
     Route: 042
  2. HEPARIN [Concomitant]
     Active Substance: HEPARIN SODIUM
     Dates: start: 20210204, end: 20210204
  3. PHESGO [Suspect]
     Active Substance: HYALURONIDASE-ZZXF\PERTUZUMAB\TRASTUZUMAB
     Indication: METASTASES TO LIVER
     Dosage: ?          OTHER FREQUENCY:EVERY 21 DAYS;?
     Route: 040
  4. DIPHENHYDRAME [Concomitant]
     Dates: start: 20210204, end: 20210204
  5. PACLITAXEL. [Suspect]
     Active Substance: PACLITAXEL
     Indication: BREAST CANCER METASTATIC
     Dosage: ?          OTHER FREQUENCY:EVERY 8 DAYS;?
     Route: 042
  6. FAMOTIDINE 20MG [Concomitant]
     Active Substance: FAMOTIDINE
     Dates: start: 20210204, end: 20210204
  7. DEXAMETHASONE 20MG [Concomitant]
     Active Substance: DEXAMETHASONE
     Dates: start: 20210204, end: 20210204
  8. PHESGO [Suspect]
     Active Substance: HYALURONIDASE-ZZXF\PERTUZUMAB\TRASTUZUMAB
     Indication: BREAST CANCER METASTATIC
     Dosage: ?          OTHER FREQUENCY:EVERY 21 DAYS;?
     Route: 040
  9. 0.9% SODIUM CHLORIDE [Concomitant]
     Active Substance: SODIUM CHLORIDE
     Dates: start: 20210204, end: 20210204

REACTIONS (13)
  - Pyrexia [None]
  - Blood alkaline phosphatase increased [None]
  - Nausea [None]
  - Tremor [None]
  - Tachycardia [None]
  - Chills [None]
  - White blood cell count increased [None]
  - Aspartate aminotransferase increased [None]
  - Malaise [None]
  - Hypotension [None]
  - Blood lactic acid increased [None]
  - Infection [None]
  - Alanine aminotransferase increased [None]

NARRATIVE: CASE EVENT DATE: 20210205
